FAERS Safety Report 20332717 (Version 3)
Quarter: 2022Q2

REPORT INFORMATION
  Report Type: Report from Study
  Country: US (occurrence: US)
  Receive Date: 20220113
  Receipt Date: 20220428
  Transmission Date: 20220721
  Serious: No
  Sender: FDA-Public Use
  Company Number: US-Ipsen Biopharmaceuticals, Inc.-2022-00349

PATIENT
  Age: 60 Year
  Sex: Male

DRUGS (1)
  1. SOMATULINE DEPOT [Suspect]
     Active Substance: LANREOTIDE ACETATE
     Indication: Carcinoid tumour
     Dosage: 120MG/0.5ML
     Route: 058
     Dates: start: 201904

REACTIONS (5)
  - Muscle spasms [Recovering/Resolving]
  - Injection site nodule [Recovering/Resolving]
  - Injection site pruritus [Recovering/Resolving]
  - Injection site scab [Recovering/Resolving]
  - Diarrhoea [Recovering/Resolving]

NARRATIVE: CASE EVENT DATE: 20190401
